FAERS Safety Report 5254884-8 (Version None)
Quarter: 2007Q1

REPORT INFORMATION
  Report Type: 
  Country: None (occurrence: None)
  Receive Date: 20070305
  Receipt Date: 20070221
  Transmission Date: 20070707
  Serious: Yes (Other)
  Sender: FDA-Public Use
  Company Number: PHHO2007AU03367

PATIENT
  Age: 70 Year
  Sex: Male

DRUGS (5)
  1. ZOLEDRONATE [Suspect]
     Indication: METASTASES TO BONE
     Dosage: 4 MG, Q3MO
     Route: 042
     Dates: start: 20060106, end: 20070112
  2. LUCRIN [Concomitant]
     Indication: PROSTATE CANCER
     Dosage: 22.5 MG, Q3MO
     Dates: start: 20060106, end: 20060329
  3. LUCRIN [Concomitant]
     Dosage: NO TREATMENT
     Dates: start: 20060330
  4. RADIOTHERAPY [Concomitant]
     Dosage: 2 GY, UNK
     Dates: start: 20060620, end: 20060807
  5. RADIOTHERAPY [Concomitant]
     Dosage: NO TREATMENT
     Dates: start: 20060808

REACTIONS (2)
  - OSTEONECROSIS [None]
  - PAIN IN JAW [None]
